FAERS Safety Report 21710285 (Version 3)
Quarter: 2024Q2

REPORT INFORMATION
  Report Type: Report from Study
  Country: US (occurrence: US)
  Receive Date: 20221211
  Receipt Date: 20240423
  Transmission Date: 20240716
  Serious: Yes (Hospitalization, Other)
  Sender: FDA-Public Use
  Company Number: US-ABBVIE-4231069

PATIENT
  Age: 25 Year
  Sex: Male
  Weight: 70 kg

DRUGS (1)
  1. HUMIRA [Suspect]
     Active Substance: ADALIMUMAB
     Indication: Crohn^s disease
     Dosage: FORM STRENGTH: 40 MILLIGRAM
     Route: 058
     Dates: start: 202108, end: 202208

REACTIONS (14)
  - Asthenia [Recovering/Resolving]
  - Visual impairment [Recovering/Resolving]
  - Brain fog [Recovering/Resolving]
  - Nervous system disorder [Recovering/Resolving]
  - Vertebral lesion [Recovering/Resolving]
  - Central nervous system lesion [Recovering/Resolving]
  - Insomnia [Recovering/Resolving]
  - Hospitalisation [Unknown]
  - Eye disorder [Unknown]
  - Muscular weakness [Recovering/Resolving]
  - Vertigo [Recovering/Resolving]
  - Dizziness [Unknown]
  - Noninfective encephalitis [Recovering/Resolving]
  - Crohn^s disease [Unknown]

NARRATIVE: CASE EVENT DATE: 20220701
